FAERS Safety Report 25738651 (Version 1)
Quarter: 2025Q3

REPORT INFORMATION
  Report Type: Spontaneous
  Country: US (occurrence: US)
  Receive Date: 20250829
  Receipt Date: 20250829
  Transmission Date: 20251021
  Serious: No
  Sender: MDD OPERATIONS
  Company Number: US-002147023-MDD202507-002455

PATIENT
  Age: 86 Year
  Sex: Female

DRUGS (8)
  1. ONAPGO [Suspect]
     Active Substance: APOMORPHINE HYDROCHLORIDE
     Indication: Parkinson^s disease
     Dosage: 15 HOURS OR LESS, TITRATE CONTINUOUS DOSAGE IS 5 MG PER HOUR WITH AN EXTRA DOSE PER DAY (0.5 MG)
     Dates: start: 20250620
  2. DONEPEZIL [Concomitant]
     Active Substance: DONEPEZIL
  3. RYTARY [Concomitant]
     Active Substance: CARBIDOPA\LEVODOPA
  4. SEROQUEL [Concomitant]
     Active Substance: QUETIAPINE FUMARATE
  5. VENTOLIN [Concomitant]
     Active Substance: ALBUTEROL SULFATE
  6. GLUTATHIONE [Concomitant]
     Active Substance: GLUTATHIONE
  7. CLONAZEPAM [Concomitant]
     Active Substance: CLONAZEPAM
  8. HYDROXYZINE [Concomitant]
     Active Substance: HYDROXYZINE HYDROCHLORIDE

REACTIONS (1)
  - Hallucination [Recovered/Resolved]

NARRATIVE: CASE EVENT DATE: 20250702
